FAERS Safety Report 22054814 (Version 2)
Quarter: 2023Q1

REPORT INFORMATION
  Report Type: Spontaneous
  Country: CN (occurrence: CN)
  Receive Date: 20230302
  Receipt Date: 20230314
  Transmission Date: 20230418
  Serious: Yes (Hospitalization, Other)
  Sender: FDA-Public Use
  Company Number: CN-009507513-2303CHN000039

PATIENT
  Age: 82 Year
  Sex: Male
  Weight: 57 kg

DRUGS (2)
  1. KEYTRUDA [Suspect]
     Active Substance: PEMBROLIZUMAB
     Indication: Lung neoplasm malignant
     Dosage: 200MG ONCE ON INFUSION DAY
     Route: 041
     Dates: start: 20230120, end: 20230120
  2. DENOSUMAB [Suspect]
     Active Substance: DENOSUMAB
     Indication: Metastases to bone
     Dosage: 120MG ONCE ON INFUSION DAY, INDICATION: BONE PROTECTION TREATMENT OF BONE METASTASISNE METASTASES
     Route: 058
     Dates: start: 20230120, end: 20230120

REACTIONS (11)
  - Haemorrhage [Recovering/Resolving]
  - Full blood count decreased [Recovering/Resolving]
  - Oral fungal infection [Recovering/Resolving]
  - Decubitus ulcer [Recovering/Resolving]
  - Oedema peripheral [Recovering/Resolving]
  - Asthenia [Recovering/Resolving]
  - Rash maculo-papular [Recovering/Resolving]
  - Mouth swelling [Recovering/Resolving]
  - Swollen tongue [Recovering/Resolving]
  - Mouth ulceration [Recovering/Resolving]
  - Tongue ulceration [Recovering/Resolving]

NARRATIVE: CASE EVENT DATE: 20230201
